FAERS Safety Report 5194724-9 (Version None)
Quarter: 2006Q4

REPORT INFORMATION
  Report Type: 
  Country: None (occurrence: None)
  Receive Date: 20061226
  Receipt Date: 20061226
  Transmission Date: 20070319
  Serious: Yes (Hospitalization)
  Sender: FDA-Public Use
  Company Number: None

PATIENT
  Sex: Male
  Weight: 56.7 kg

DRUGS (5)
  1. TEMOZOLOMIDE [Suspect]
     Dosage: 5250 MG
  2. BACTRIM [Concomitant]
  3. DECADRON [Concomitant]
  4. KEPPRA [Concomitant]
  5. ZOCOR [Concomitant]

REACTIONS (1)
  - LYMPHOPENIA [None]
